FAERS Safety Report 4489393-7 (Version None)
Quarter: 2004Q4

REPORT INFORMATION
  Report Type: 
  Country: None (occurrence: None)
  Receive Date: 20041101
  Receipt Date: 20041021
  Transmission Date: 20050328
  Serious: Yes (Other)
  Sender: FDA-Public Use
  Company Number: DE-ABBOTT-04P-062-0278290-00

PATIENT
  Age: 42 Year
  Sex: Male

DRUGS (12)
  1. ERGENYL TABLETS [Suspect]
     Indication: MAJOR DEPRESSION
     Route: 048
  2. ERGENYL TABLETS [Suspect]
     Indication: PERSECUTORY DELUSION
     Route: 048
  3. ERGENYL TABLETS [Suspect]
     Route: 048
  4. LITHIUM [Concomitant]
     Indication: MAJOR DEPRESSION
     Route: 048
  5. LITHIUM [Concomitant]
     Indication: PERSECUTORY DELUSION
  6. CLOMIPRAMINE HCL [Concomitant]
     Indication: MAJOR DEPRESSION
     Route: 065
  7. CLOMIPRAMINE HCL [Concomitant]
     Indication: PERSECUTORY DELUSION
  8. RISPERIDONE [Concomitant]
     Indication: MAJOR DEPRESSION
     Route: 048
  9. RISPERIDONE [Concomitant]
     Indication: PERSECUTORY DELUSION
     Route: 048
  10. FLUPENTIXOL [Concomitant]
     Indication: MAJOR DEPRESSION
     Route: 065
  11. FLUPENTIXOL [Concomitant]
     Indication: PERSECUTORY DELUSION
  12. ACARBOSE [Concomitant]
     Indication: DIABETES MELLITUS
     Route: 048

REACTIONS (6)
  - AMMONIA INCREASED [None]
  - ELECTROENCEPHALOGRAM ABNORMAL [None]
  - MYOCLONUS [None]
  - SEDATION [None]
  - TOXIC INDUCED ENCEPHALOPATHY [None]
  - TREMOR [None]
